FAERS Safety Report 8913817 (Version 1)
Quarter: 2012Q4

REPORT INFORMATION
  Report Type: 
  Country: US (occurrence: US)
  Receive Date: 20121119
  Receipt Date: 20121119
  Transmission Date: 20130627
  Serious: Yes (Other)
  Sender: FDA-Public Use
  Company Number: US-BAYER-2012-120065

PATIENT
  Age: 57 Year
  Sex: Female

DRUGS (3)
  1. ULTRAVIST [Suspect]
     Indication: COMPUTERISED TOMOGRAM ABDOMEN
     Dosage: 100 ml, ONCE
     Route: 043
     Dates: start: 20121114, end: 20121114
  2. ULTRAVIST [Suspect]
     Indication: FEVER
  3. ULTRAVIST [Suspect]
     Indication: GENERAL BODY PAIN

REACTIONS (1)
  - Dyspnoea [Recovered/Resolved]
